FAERS Safety Report 15624922 (Version 1)
Quarter: 2018Q4

REPORT INFORMATION
  Report Type: Report from Study
  Country: JP (occurrence: JP)
  Receive Date: 20181116
  Receipt Date: 20181116
  Transmission Date: 20190205
  Serious: Yes (Death, Hospitalization, Disabling, Other)
  Sender: FDA-Public Use
  Company Number: PHJP2006JP004463

PATIENT
  Age: 75 Year
  Sex: Male
  Weight: 59 kg

DRUGS (3)
  1. CGP 57148B [Suspect]
     Active Substance: IMATINIB MESYLATE
     Dosage: 400 MG, QD
     Route: 048
     Dates: start: 20050207, end: 20050714
  2. CGP 57148B [Suspect]
     Active Substance: IMATINIB MESYLATE
     Dosage: 300 MG, QD
     Route: 048
     Dates: start: 20041022, end: 20050206
  3. CGP 57148B [Suspect]
     Active Substance: IMATINIB MESYLATE
     Indication: CHRONIC MYELOID LEUKAEMIA
     Dosage: 400 MG, QD
     Route: 048
     Dates: start: 20030813, end: 20041021

REACTIONS (17)
  - Metastasis [Fatal]
  - Liver disorder [Recovered/Resolved]
  - Psoriasis [Not Recovered/Not Resolved]
  - Metastases to liver [Fatal]
  - Dehydration [Recovered/Resolved]
  - Asthenia [Recovered/Resolved]
  - Abdominal pain [Recovering/Resolving]
  - Rash [Not Recovered/Not Resolved]
  - Ileus [Recovering/Resolving]
  - Malignant neoplasm progression [Recovering/Resolving]
  - Subileus [Recovering/Resolving]
  - Drug eruption [Recovering/Resolving]
  - Anaemia [Not Recovered/Not Resolved]
  - Insomnia [Recovering/Resolving]
  - Pyrexia [Unknown]
  - Transaminases increased [Recovered/Resolved]
  - White blood cell count decreased [Recovered/Resolved]

NARRATIVE: CASE EVENT DATE: 20030820
